FAERS Safety Report 15934911 (Version 1)
Quarter: 2019Q1

REPORT INFORMATION
  Report Type: Spontaneous
  Country: RE (occurrence: RE)
  Receive Date: 20190207
  Receipt Date: 20190207
  Transmission Date: 20190417
  Serious: Yes (Disabling)
  Sender: FDA-Public Use
  Company Number: RE-GILEAD-2019-0388536

PATIENT
  Sex: Male

DRUGS (3)
  1. ODEFSEY [Suspect]
     Active Substance: EMTRICITABINE\RILPIVIRINE HYDROCHLORIDE\TENOFOVIR ALAFENAMIDE FUMARATE
     Indication: PRODUCT USED FOR UNKNOWN INDICATION
     Dosage: UNK
     Route: 048
     Dates: start: 20181101, end: 20190101
  2. EVIPLERA [Concomitant]
     Active Substance: EMTRICITABINE\RILPIVIRINE\TENOFOVIR DISOPROXIL FUMARATE
     Dosage: UNK
     Dates: start: 2016
  3. EVIPLERA [Concomitant]
     Active Substance: EMTRICITABINE\RILPIVIRINE\TENOFOVIR DISOPROXIL FUMARATE
     Dosage: UNK
     Dates: start: 201901

REACTIONS (1)
  - Asthenia [Unknown]
